FAERS Safety Report 11886633 (Version 1)
Quarter: 2016Q1

REPORT INFORMATION
  Report Type: Spontaneous
  Country: UA (occurrence: UA)
  Receive Date: 20160104
  Receipt Date: 20160104
  Transmission Date: 20160526
  Serious: Yes (Death, Life-Threatening, Hospitalization, Other)
  Sender: FDA-Public Use
  Company Number: UA-TAKEDA-2015MPI008838

PATIENT
  Age: 55 Year
  Sex: Female
  Weight: 84 kg

DRUGS (26)
  1. VELCADE [Suspect]
     Active Substance: BORTEZOMIB
     Indication: PLASMA CELL MYELOMA
     Dosage: 2.5 MG, UNK
     Route: 058
     Dates: start: 20150907
  2. SOLU-CORTEF [Concomitant]
     Active Substance: HYDROCORTISONE SODIUM SUCCINATE
     Indication: ACUTE CORONARY SYNDROME
     Dosage: 200 MG, UNK
     Route: 042
  3. CLEXANE [Concomitant]
     Active Substance: ENOXAPARIN SODIUM
     Indication: PULMONARY ARTERY THROMBOSIS
     Route: 058
  4. METAMIZOLE [Concomitant]
     Active Substance: METAMIZOLE
     Indication: SINUS TACHYCARDIA
     Dosage: 1000 MG, UNK
     Route: 065
  5. CEFTRIAXONE. [Concomitant]
     Active Substance: CEFTRIAXONE
     Dosage: 1 G, BID
     Route: 042
  6. EPINEPHRINE. [Concomitant]
     Active Substance: EPINEPHRINE
     Indication: ACUTE CORONARY SYNDROME
     Dosage: 3 MG, UNK
     Route: 042
  7. FUROSEMIDE. [Concomitant]
     Active Substance: FUROSEMIDE
     Indication: ACUTE CORONARY SYNDROME
     Dosage: 60 MG, UNK
     Route: 042
  8. FLUPIRTINE MALEATE [Concomitant]
     Active Substance: FLUPIRTINE MALEATE
     Indication: BACK PAIN
     Dosage: UNK
     Route: 048
  9. DIPHENHYDRAMINE. [Concomitant]
     Active Substance: DIPHENHYDRAMINE
     Indication: SINUS TACHYCARDIA
     Dosage: 10 MG, UNK
     Route: 030
  10. STABISOL [Concomitant]
     Indication: ACUTE CORONARY SYNDROME
     Dosage: UNK
     Route: 042
  11. VALACYCLOVIR [Concomitant]
     Active Substance: VALACYCLOVIR HYDROCHLORIDE
     Indication: ANTIVIRAL PROPHYLAXIS
     Dosage: 300 MG, UNK
     Route: 048
  12. CEFTRIAXONE. [Concomitant]
     Active Substance: CEFTRIAXONE
     Indication: PULMONARY ARTERY THROMBOSIS
     Dosage: 1 G, BID
     Route: 042
  13. SOLU-MEDROL [Concomitant]
     Active Substance: METHYLPREDNISOLONE SODIUM SUCCINATE
     Indication: ACUTE CORONARY SYNDROME
     Dosage: 1000 MG, UNK
     Route: 042
  14. MANNITOL. [Concomitant]
     Active Substance: MANNITOL
     Indication: ACUTE CORONARY SYNDROME
     Dosage: UNK
     Route: 042
  15. OMEPRAZOLE. [Concomitant]
     Active Substance: OMEPRAZOLE
     Indication: GASTROINTESTINAL DISORDER THERAPY
     Dosage: 20 MG, UNK
     Route: 048
  16. CEFTRIAXONE. [Concomitant]
     Active Substance: CEFTRIAXONE
     Indication: CHEST PAIN
     Dosage: 2 G, UNK
     Route: 042
  17. DEXAMETHASONE. [Concomitant]
     Active Substance: DEXAMETHASONE
     Indication: ACUTE CORONARY SYNDROME
     Dosage: 12 MG, UNK
     Route: 042
  18. DARATUMUMAB [Suspect]
     Active Substance: DARATUMUMAB
     Indication: PLASMA CELL MYELOMA
     Dosage: 1328 MG, UNK
     Route: 042
     Dates: start: 20150907, end: 20150907
  19. DOPAMINE [Concomitant]
     Active Substance: DOPAMINE\DOPAMINE HYDROCHLORIDE
     Indication: ACUTE CORONARY SYNDROME
     Dosage: 500 MG, UNK
     Route: 042
  20. DEXAMETHASONE. [Suspect]
     Active Substance: DEXAMETHASONE
     Indication: PLASMA CELL MYELOMA
     Dosage: 20 MG, UNK
     Route: 042
     Dates: start: 20150907, end: 20150910
  21. CALCIUM GLUCONATE. [Concomitant]
     Active Substance: CALCIUM GLUCONATE
     Indication: ACUTE CORONARY SYNDROME
     Dosage: UNK
     Route: 042
  22. MORPHINE [Concomitant]
     Active Substance: MORPHINE
     Indication: ACUTE CORONARY SYNDROME
     Dosage: 20 MG, UNK
     Route: 058
  23. CEFTRIAXONE. [Concomitant]
     Active Substance: CEFTRIAXONE
     Indication: TACHYPNOEA
     Dosage: 2 G, UNK
     Route: 042
  24. CEFTRIAXONE. [Concomitant]
     Active Substance: CEFTRIAXONE
     Dosage: 1 G, BID
     Route: 042
  25. CEFTRIAXONE. [Concomitant]
     Active Substance: CEFTRIAXONE
     Dosage: 2 G, UNK
     Route: 042
  26. ATROPINE. [Concomitant]
     Active Substance: ATROPINE
     Indication: ACUTE CORONARY SYNDROME
     Dosage: 30 MG, UNK
     Route: 042

REACTIONS (2)
  - Acute coronary syndrome [Fatal]
  - Pulmonary artery thrombosis [Not Recovered/Not Resolved]

NARRATIVE: CASE EVENT DATE: 20150910
